FAERS Safety Report 4321153-X (Version None)
Quarter: 2004Q1

REPORT INFORMATION
  Report Type: 
  Country: None (occurrence: None)
  Receive Date: 20040315
  Receipt Date: 20031024
  Transmission Date: 20041129
  Serious: Yes (Other)
  Sender: FDA-Public Use
  Company Number: PHEH2003US09837

PATIENT
  Age: 40 Year

DRUGS (1)
  1. TRILEPTAL [Suspect]
     Indication: BIPOLAR DISORDER
     Dosage: 900 MG, QD
     Dates: start: 20030401, end: 20031009

REACTIONS (2)
  - DIARRHOEA [None]
  - HEPATIC ENZYME INCREASED [None]
